FAERS Safety Report 9554608 (Version 1)
Quarter: 2013Q3

REPORT INFORMATION
  Report Type: Spontaneous
  Country: US (occurrence: US)
  Receive Date: 20130925
  Receipt Date: 20130925
  Transmission Date: 20140515
  Serious: Yes (Other)
  Sender: FDA-Public Use
  Company Number: US-BAXTER-2013BAX037041

PATIENT
  Age: 70 Year
  Sex: Male

DRUGS (6)
  1. OSMITROL INJECTION (MANNITOL INJECTION, USP) [Suspect]
     Indication: ANGLE CLOSURE GLAUCOMA
     Dosage: 500 M3 X 10 DOSES
     Route: 042
  2. OSMITROL INJECTION (MANNITOL INJECTION, USP) [Suspect]
     Route: 042
  3. ACETAZOLAMIDE [Suspect]
     Indication: ANGLE CLOSURE GLAUCOMA
     Route: 048
  4. VERAPAMIL [Concomitant]
     Indication: PRODUCT USED FOR UNKNOWN INDICATION
     Route: 065
  5. COUMADIN [Concomitant]
     Indication: PRODUCT USED FOR UNKNOWN INDICATION
     Route: 065
  6. TOLAZAMIDE [Concomitant]
     Indication: PRODUCT USED FOR UNKNOWN INDICATION
     Route: 065

REACTIONS (2)
  - Renal failure acute [Recovered/Resolved]
  - Toxicity to various agents [Recovered/Resolved]
